FAERS Safety Report 12691856 (Version 3)
Quarter: 2016Q4

REPORT INFORMATION
  Report Type: Spontaneous
  Country: FR (occurrence: FR)
  Receive Date: 20160827
  Receipt Date: 20161005
  Transmission Date: 20170207
  Serious: Yes (Hospitalization)
  Sender: FDA-Public Use
  Company Number: FR-ASTRAZENECA-2016SE91381

PATIENT
  Age: 84 Year
  Sex: Female

DRUGS (12)
  1. METFORMINE [Concomitant]
     Active Substance: METFORMIN HYDROCHLORIDE
     Route: 048
  2. VENTOLINE [Concomitant]
     Active Substance: ALBUTEROL
     Indication: ASTHMA
     Dosage: 1.0DF AS REQUIRED
     Route: 055
  3. DEROXAT [Concomitant]
     Active Substance: PAROXETINE HYDROCHLORIDE
     Route: 048
  4. TAGRISSO [Suspect]
     Active Substance: OSIMERTINIB
     Indication: LUNG ADENOCARCINOMA
     Route: 048
     Dates: start: 201607
  5. EFFEXOR [Concomitant]
     Active Substance: VENLAFAXINE HYDROCHLORIDE
     Route: 048
  6. DIAMICRON [Concomitant]
     Active Substance: GLICLAZIDE
     Route: 048
  7. PLAVIX [Concomitant]
     Active Substance: CLOPIDOGREL BISULFATE
     Route: 048
  8. KARDEGIC [Concomitant]
     Active Substance: ASPIRIN LYSINE
     Route: 048
  9. LASILIX [Concomitant]
     Active Substance: FUROSEMIDE
     Route: 048
  10. CERIS [Concomitant]
     Active Substance: TROSPIUM CHLORIDE
     Route: 048
  11. TAGRISSO [Suspect]
     Active Substance: OSIMERTINIB
     Indication: LUNG ADENOCARCINOMA
     Route: 048
     Dates: start: 20160201, end: 201606
  12. TAGRISSO [Suspect]
     Active Substance: OSIMERTINIB
     Indication: LUNG ADENOCARCINOMA
     Route: 048
     Dates: start: 201606, end: 201607

REACTIONS (4)
  - Product blister packaging issue [Recovered/Resolved]
  - Respiratory distress [Recovered/Resolved]
  - Cardiac failure [Recovered/Resolved]
  - Poor quality drug administered [Recovered/Resolved]

NARRATIVE: CASE EVENT DATE: 201606
